FAERS Safety Report 13981157 (Version 1)
Quarter: 2017Q3

REPORT INFORMATION
  Report Type: Spontaneous
  Country: SE (occurrence: SE)
  Receive Date: 20170918
  Receipt Date: 20170918
  Transmission Date: 20171128
  Serious: Yes (Other)
  Sender: FDA-Public Use
  Company Number: SE-BRISTOL-MYERS SQUIBB COMPANY-BMS-2017-082461

PATIENT
  Age: 19 Year
  Sex: Female

DRUGS (1)
  1. ABILIFY [Suspect]
     Active Substance: ARIPIPRAZOLE
     Indication: POST-TRAUMATIC STRESS DISORDER
     Dosage: UNK
     Route: 065
     Dates: end: 20170830

REACTIONS (4)
  - Thyroid disorder [Unknown]
  - Weight decreased [Unknown]
  - Product use in unapproved indication [Unknown]
  - Liver injury [Unknown]

NARRATIVE: CASE EVENT DATE: 20170827
